FAERS Safety Report 6013617-8 (Version None)
Quarter: 2008Q4

REPORT INFORMATION
  Report Type: 
  Country: None (occurrence: None)
  Receive Date: 20081216
  Receipt Date: 20070312
  Transmission Date: 20090506
  Serious: Yes (Death)
  Sender: FDA-Public Use
  Company Number: HQWYE436512MAR07

PATIENT
  Age: 36 Year
  Sex: Male

DRUGS (2)
  1. EFFEXOR XR [Suspect]
     Indication: DEPRESSION
  2. ALCOHOL (ETHANOL) [Concomitant]

REACTIONS (1)
  - COMPLETED SUICIDE [None]
